FAERS Safety Report 4357053-9 (Version None)
Quarter: 2004Q2

REPORT INFORMATION
  Report Type: 
  Country: None (occurrence: None)
  Receive Date: 20040512
  Receipt Date: 20040429
  Transmission Date: 20050107
  Serious: Yes (Other)
  Sender: FDA-Public Use
  Company Number: GB-GLAXOSMITHKLINE-B0332163A

PATIENT
  Age: 44 Year
  Sex: Male

DRUGS (2)
  1. COMBIVIR [Suspect]
     Indication: HIV INFECTION
     Dosage: 1TAB PER DAY
     Route: 048
     Dates: start: 20040414, end: 20040423
  2. KALETRA [Concomitant]

REACTIONS (3)
  - ANAEMIA [None]
  - LEUKOPENIA [None]
  - NEUTROPENIA [None]
